FAERS Safety Report 23348224 (Version 1)
Quarter: 2023Q4

REPORT INFORMATION
  Report Type: Spontaneous
  Country: US (occurrence: US)
  Receive Date: 20231228
  Receipt Date: 20231228
  Transmission Date: 20240110
  Serious: Yes (Hospitalization, Other)
  Sender: FDA-Public Use
  Company Number: US-JUBILANT CADISTA PHARMACEUTICALS-2023JUB00351

PATIENT
  Sex: Female
  Weight: 68.039 kg

DRUGS (6)
  1. PREDNISONE [Suspect]
     Active Substance: PREDNISONE
     Indication: Crohn^s disease
     Dosage: 10 MG
     Dates: start: 1993
  2. PREDNISONE [Suspect]
     Active Substance: PREDNISONE
     Dosage: UNK
  3. PREDNISONE [Suspect]
     Active Substance: PREDNISONE
     Dosage: 60 MG, UNK
  4. PREDNISONE [Suspect]
     Active Substance: PREDNISONE
     Dosage: 10 MG
  5. VITAMINS [Concomitant]
     Active Substance: VITAMINS
     Dosage: UNK
  6. MINERALS [Concomitant]
     Active Substance: MINERALS
     Dosage: UNK

REACTIONS (18)
  - Crohn^s disease [Unknown]
  - Drug ineffective for unapproved indication [Recovered/Resolved]
  - Cushing^s syndrome [Recovered/Resolved]
  - Teeth brittle [Not Recovered/Not Resolved]
  - Osteopenia [Not Recovered/Not Resolved]
  - Swelling [Unknown]
  - Sensitive skin [Not Recovered/Not Resolved]
  - Alopecia [Recovered/Resolved]
  - Alopecia areata [Recovered/Resolved]
  - Sensory loss [Not Recovered/Not Resolved]
  - Nail growth abnormal [Not Recovered/Not Resolved]
  - Adrenal disorder [Unknown]
  - Body height decreased [Unknown]
  - Nerve injury [Not Recovered/Not Resolved]
  - Tooth demineralisation [Not Recovered/Not Resolved]
  - Hypoaesthesia [Not Recovered/Not Resolved]
  - Bone loss [Unknown]
  - Fluid retention [Recovered/Resolved]

NARRATIVE: CASE EVENT DATE: 20000101
